FAERS Safety Report 15972582 (Version 4)
Quarter: 2019Q1

REPORT INFORMATION
  Report Type: Report from Study
  Country: SE (occurrence: SE)
  Receive Date: 20190216
  Receipt Date: 20190325
  Transmission Date: 20190418
  Serious: Yes (Other)
  Sender: FDA-Public Use
  Company Number: SE-ACCORD-107301

PATIENT
  Age: 66 Year
  Sex: Male

DRUGS (6)
  1. HEPARIN [Concomitant]
     Active Substance: HEPARIN SODIUM
     Route: 065
  2. QUETIAPINE. [Suspect]
     Active Substance: QUETIAPINE
     Indication: PRODUCT USED FOR UNKNOWN INDICATION
     Dosage: 200 MG DAILY,500 MG DOSE TAKEN
     Route: 065
  3. VALPROIC ACID. [Interacting]
     Active Substance: VALPROIC ACID
     Indication: PRODUCT USED FOR UNKNOWN INDICATION
     Dosage: 1500 MILLIGRAM DAILY
     Route: 065
  4. METRONIDAZOLE. [Concomitant]
     Active Substance: METRONIDAZOLE
     Dosage: UNK, UNK
     Route: 065
  5. CEFTRIAXONE. [Concomitant]
     Active Substance: CEFTRIAXONE
     Route: 065
  6. LITHIUM. [Suspect]
     Active Substance: LITHIUM
     Indication: PRODUCT USED FOR UNKNOWN INDICATION
     Route: 065

REACTIONS (5)
  - Depressed level of consciousness [Recovered/Resolved]
  - Drug interaction [Unknown]
  - Diabetes insipidus [Unknown]
  - Extrapyramidal disorder [Unknown]
  - Hypernatraemia [Unknown]
